FAERS Safety Report 6814558-6 (Version None)
Quarter: 2010Q3

REPORT INFORMATION
  Report Type: 
  Country: None (occurrence: None)
  Receive Date: 20100702
  Receipt Date: 20100623
  Transmission Date: 20110219
  Serious: Yes (Death, Hospitalization)
  Sender: FDA-Public Use
  Company Number: FR-JNJFOC-20100600178

PATIENT
  Sex: Male

DRUGS (14)
  1. CONTRAMAL [Suspect]
     Indication: SCIATICA
     Dosage: 4 PER DAY
     Route: 048
  2. PARACETAMOL [Suspect]
     Route: 048
  3. PARACETAMOL [Suspect]
     Indication: SCIATICA
     Dosage: 4 PER DAY
     Route: 048
  4. LAMALINE [Suspect]
     Indication: SCIATICA
     Dosage: 1 TO 2 DAILY DOSES
     Route: 048
  5. LYRICA [Suspect]
     Indication: SCIATICA
     Dosage: 4 PER DAY
     Route: 048
  6. OMEPRAZOLE [Suspect]
     Indication: PRODUCT USED FOR UNKNOWN INDICATION
     Dosage: 1 PER DAY
     Route: 048
  7. AUGMENTIN '125' [Suspect]
     Indication: LUNG DISORDER
     Dosage: 3 PER DAY
     Route: 042
  8. OFLOCET [Suspect]
     Indication: LUNG DISORDER
     Dosage: 2 PER DAY
     Route: 042
  9. IBUPROFEN [Suspect]
     Indication: SCIATICA
     Dosage: 3 PER DAY
     Route: 002
  10. VOLTAREN [Concomitant]
     Indication: SCIATICA
     Dosage: 1 PER DAY
     Route: 030
  11. ACUPAN [Concomitant]
     Indication: SCIATICA
     Route: 030
  12. FELODIPINE [Concomitant]
     Indication: HYPERTENSION
     Dosage: 1 PER DAY
  13. KARDEGIC [Concomitant]
     Indication: PERIPHERAL ARTERIAL OCCLUSIVE DISEASE
     Dosage: 1 PER DAY
  14. CORTICOSTEROIDS [Concomitant]

REACTIONS (1)
  - CYTOLYTIC HEPATITIS [None]
